FAERS Safety Report 17019776 (Version 1)
Quarter: 2019Q4

REPORT INFORMATION
  Report Type: Spontaneous
  Country: US (occurrence: US)
  Receive Date: 20191112
  Receipt Date: 20191112
  Transmission Date: 20200122
  Serious: No
  Sender: FDA-Public Use
  Company Number: US-BTG-201900034

PATIENT
  Age: 55 Year
  Sex: Female

DRUGS (2)
  1. CROFAB [Suspect]
     Active Substance: CROTALIDAE POLYVALENT IMMUNE FAB (OVINE)
     Indication: SNAKE BITE
     Dosage: 6 VIALS INITIALLY
     Route: 065
     Dates: start: 20190226, end: 20190226
  2. CROFAB [Suspect]
     Active Substance: CROTALIDAE POLYVALENT IMMUNE FAB (OVINE)
     Indication: SNAKE BITE
     Dosage: 2 VIALS EVERY 6 HOUR (MAINTENANCE DOSE)
     Route: 065
     Dates: start: 20190226, end: 20190227

REACTIONS (5)
  - Pain [Recovering/Resolving]
  - Liver function test increased [Not Recovered/Not Resolved]
  - Oedema [Recovering/Resolving]
  - Puncture site pain [Recovering/Resolving]
  - Swelling [Recovering/Resolving]

NARRATIVE: CASE EVENT DATE: 20190226
